FAERS Safety Report 6920343-7 (Version None)
Quarter: 2010Q3

REPORT INFORMATION
  Report Type: 
  Country: None (occurrence: None)
  Receive Date: 20100730
  Receipt Date: 20100112
  Transmission Date: 20110219
  Serious: Yes (Other)
  Sender: FDA-Public Use
  Company Number: US-001363

PATIENT
  Sex: Male

DRUGS (1)
  1. HUMAN GROWTH HORMONE, RECOMBINANT [Suspect]
     Indication: PRODUCT USED FOR UNKNOWN INDICATION

REACTIONS (1)
  - MELANOCYTIC NAEVUS [None]
